FAERS Safety Report 23831695 (Version 3)
Quarter: 2024Q4

REPORT INFORMATION
  Report Type: Spontaneous
  Country: US (occurrence: US)
  Receive Date: 20240508
  Receipt Date: 20241028
  Transmission Date: 20250115
  Serious: No
  Sender: BRISTOL-MYERS SQUIBB COMPANY
  Company Number: US-BRISTOL-MYERS SQUIBB COMPANY-2024-067071

PATIENT
  Age: 57 Year
  Sex: Male

DRUGS (3)
  1. SPRYCEL [Suspect]
     Active Substance: DASATINIB
     Indication: Chronic myeloid leukaemia
     Route: 048
     Dates: start: 202403
  2. SPRYCEL [Suspect]
     Active Substance: DASATINIB
     Route: 048
     Dates: start: 202403
  3. SPRYCEL [Suspect]
     Active Substance: DASATINIB
     Route: 048
     Dates: start: 202403

REACTIONS (7)
  - Eye pain [Unknown]
  - Nasopharyngitis [Unknown]
  - Periorbital swelling [Unknown]
  - Musculoskeletal pain [Unknown]
  - Skin disorder [Unknown]
  - Dry skin [Unknown]
  - Myalgia [Unknown]
